FAERS Safety Report 5273539-7 (Version None)
Quarter: 2007Q1

REPORT INFORMATION
  Report Type: 
  Country: None (occurrence: None)
  Receive Date: 20070323
  Receipt Date: 20070315
  Transmission Date: 20070707
  Serious: Yes (Other)
  Sender: FDA-Public Use
  Company Number: PHFR2006GB03740

PATIENT
  Age: 46 Year
  Sex: Male

DRUGS (5)
  1. CLOZARIL [Suspect]
     Indication: SCHIZOPHRENIA
     Dosage: 300 MG/DAY
     Route: 048
     Dates: start: 20060208
  2. PAROXETINE HCL [Concomitant]
     Indication: DEPRESSION
     Dosage: 30 MG/DAY
     Route: 048
  3. METFORMIN [Concomitant]
     Indication: DIABETES MELLITUS
     Dosage: 1000 MG, TID
     Route: 048
  4. GLICLAZIDE [Concomitant]
     Indication: DIABETES MELLITUS
     Dosage: 80 MG/DAY
     Route: 048
  5. DIAZEPAM [Concomitant]
     Dosage: 5 MG, TID
     Route: 065

REACTIONS (8)
  - CARDIOTOXICITY [None]
  - DIABETES MELLITUS INADEQUATE CONTROL [None]
  - DYSPNOEA [None]
  - ELECTROCARDIOGRAM QRS COMPLEX PROLONGED [None]
  - IRRITABILITY [None]
  - NO THERAPEUTIC RESPONSE [None]
  - OEDEMA [None]
  - WEIGHT INCREASED [None]
